FAERS Safety Report 18250559 (Version 2)
Quarter: 2020Q3

REPORT INFORMATION
  Report Type: Report from Study
  Country: US (occurrence: US)
  Receive Date: 20200909
  Receipt Date: 20200923
  Transmission Date: 20201103
  Serious: Yes (Hospitalization)
  Sender: FDA-Public Use
  Company Number: US-EXELIXIS-CABO-20032679

PATIENT
  Sex: Male

DRUGS (1)
  1. CABOMETYX [Suspect]
     Active Substance: CABOZANTINIB S-MALATE
     Indication: RENAL CELL CARCINOMA
     Dosage: 60 MG, QD
     Dates: start: 20200806

REACTIONS (3)
  - Fatigue [Unknown]
  - Intestinal obstruction [Unknown]
  - Blood pressure increased [Recovering/Resolving]
